FAERS Safety Report 16174070 (Version 1)
Quarter: 2019Q2

REPORT INFORMATION
  Report Type: Spontaneous
  Country: US (occurrence: US)
  Receive Date: 20190409
  Receipt Date: 20190409
  Transmission Date: 20190711
  Serious: No
  Sender: FDA-Public Use
  Company Number: US-MYLANLABS-2019M1027029

PATIENT
  Age: 73 Year
  Sex: Male
  Weight: 108 kg

DRUGS (2)
  1. MORPHINE SULFATE EXTENDED-RELEASE TABLETS [Suspect]
     Active Substance: MORPHINE SULFATE
     Indication: BACK DISORDER
  2. MORPHINE SULFATE EXTENDED-RELEASE TABLETS [Suspect]
     Active Substance: MORPHINE SULFATE
     Indication: BACK PAIN
     Dosage: 1 DOSAGE FORM, BID
     Route: 048
     Dates: start: 20190317

REACTIONS (1)
  - Drug ineffective [Not Recovered/Not Resolved]

NARRATIVE: CASE EVENT DATE: 20190317
